FAERS Safety Report 4472538-2 (Version None)
Quarter: 2004Q4

REPORT INFORMATION
  Report Type: 
  Country: None (occurrence: None)
  Receive Date: 20041007
  Receipt Date: 20040924
  Transmission Date: 20050328
  Serious: Yes (Other)
  Sender: FDA-Public Use
  Company Number: USA-2004-0016986

PATIENT
  Age: 52 Year
  Sex: Male

DRUGS (2)
  1. OXYCONTIN [Suspect]
  2. PERCOCET [Suspect]

REACTIONS (6)
  - ANGER [None]
  - DRUG DEPENDENCE [None]
  - HOMICIDAL IDEATION [None]
  - PHYSICAL ASSAULT [None]
  - POLYSUBSTANCE ABUSE [None]
  - PSYCHIATRIC SYMPTOM [None]
